FAERS Safety Report 14141045 (Version 1)
Quarter: 2017Q4

REPORT INFORMATION
  Report Type: Report from Study
  Country: JP (occurrence: JP)
  Receive Date: 20171030
  Receipt Date: 20171030
  Transmission Date: 20180321
  Serious: Yes (Death, Other)
  Sender: FDA-Public Use
  Company Number: JP-ROCHE-1296564

PATIENT
  Sex: Female

DRUGS (3)
  1. CAPECITABINE. [Suspect]
     Active Substance: CAPECITABINE
     Indication: RECTAL CANCER
     Dosage: 2000 MG/M2/DAY, WHICH WAS DIVIDED INTO TWO SPLIT DAILY DOSES FOR 14 DAYS FOLLOWED BY 7 DAYS OF REST.
     Route: 048
  2. BEVACIZUMAB. [Suspect]
     Active Substance: BEVACIZUMAB
     Indication: RECTAL CANCER
     Route: 065
  3. OXALIPLATIN. [Suspect]
     Active Substance: OXALIPLATIN
     Indication: RECTAL CANCER
     Dosage: ON DAY 1 AFTER BEVACIZUMAB
     Route: 042

REACTIONS (3)
  - Pelvic infection [Fatal]
  - Rectal perforation [Fatal]
  - Shock [Unknown]
